FAERS Safety Report 6175352-5 (Version None)
Quarter: 2009Q2

REPORT INFORMATION
  Report Type: 
  Country: None (occurrence: None)
  Receive Date: 20090429
  Receipt Date: 20090413
  Transmission Date: 20091009
  Serious: Yes (Other)
  Sender: FDA-Public Use
  Company Number: ACO_00542_2009

PATIENT
  Age: 45 Year
  Sex: Male

DRUGS (3)
  1. TIZANIDINE HYDROCHLORIDE [Suspect]
     Indication: MUSCLE SPASMS
     Dosage: (4 MG QD, AT BEDTIME)
  2. METHADONE HCL [Suspect]
     Indication: DRUG USE FOR UNKNOWN INDICATION
     Dosage: (2.5 MQ BID)
  3. HYDROCODONE BITARTRATE [Concomitant]

REACTIONS (5)
  - BACK PAIN [None]
  - CONDITION AGGRAVATED [None]
  - DRUG INTERACTION [None]
  - ROAD TRAFFIC ACCIDENT [None]
  - SEDATION [None]
